FAERS Safety Report 6968430-1 (Version None)
Quarter: 2010Q3

REPORT INFORMATION
  Report Type: 
  Country: None (occurrence: None)
  Receive Date: 20100907
  Receipt Date: 20100825
  Transmission Date: 20110219
  Serious: Yes (Hospitalization)
  Sender: FDA-Public Use
  Company Number: PHHY2010IN57686

PATIENT
  Age: 68 Year
  Sex: Male

DRUGS (1)
  1. ZOLEDRONIC ACID [Suspect]
     Indication: MULTIPLE MYELOMA

REACTIONS (5)
  - BONE DISORDER [None]
  - DENTAL CARIES [None]
  - OSTEONECROSIS OF JAW [None]
  - SWELLING [None]
  - TOOTH EXTRACTION [None]
